FAERS Safety Report 24196801 (Version 1)
Quarter: 2024Q3

REPORT INFORMATION
  Report Type: Spontaneous
  Country: US (occurrence: US)
  Receive Date: 20240810
  Receipt Date: 20240810
  Transmission Date: 20241016
  Serious: Yes (Other)
  Sender: TEVA
  Company Number: US-TEVA-VS-3229429

PATIENT
  Age: 42 Year
  Sex: Female
  Weight: 56.7 kg

DRUGS (2)
  1. KARIVA [Suspect]
     Active Substance: DESOGESTREL\ETHINYL ESTRADIOL
     Indication: Hormone level abnormal
     Route: 065
  2. MIRCETTE [Suspect]
     Active Substance: DESOGESTREL\ETHINYL ESTRADIOL
     Indication: Hormone level abnormal
     Route: 065

REACTIONS (8)
  - Homicidal ideation [Recovered/Resolved]
  - Immune system disorder [Unknown]
  - Product use in unapproved indication [Unknown]
  - Connective tissue disorder [Unknown]
  - Adverse reaction [Unknown]
  - Bacterial infection [Unknown]
  - Suicidal ideation [Recovered/Resolved]
  - Reaction to excipient [Unknown]

NARRATIVE: CASE EVENT DATE: 20150101
